FAERS Safety Report 6243955-5 (Version None)
Quarter: 2009Q2

REPORT INFORMATION
  Report Type: 
  Country: None (occurrence: None)
  Receive Date: 20090623
  Receipt Date: 20090616
  Transmission Date: 20091009
  Serious: Yes (Hospitalization)
  Sender: FDA-Public Use
  Company Number: US025516

PATIENT
  Age: 62 Year
  Sex: Male
  Weight: 73 kg

DRUGS (10)
  1. TREANDA [Suspect]
     Indication: NON-HODGKIN'S LYMPHOMA
     Dosage: 90 MG/M2, D1 AND D2 Q35 DAYS, INTRAVENOUS (NOT OTHERWISE SPECIFIED)
     Route: 042
     Dates: start: 20090224, end: 20090225
  2. VELCADE [Suspect]
     Indication: NON-HODGKIN'S LYMPHOMA
     Dosage: 1.6 MG/M2 , CYCLE 1, DAYS 1,8,15,22 Q35 DAYS, INTRAVENOUS (NOT OTHERWISE SPECIFIED)
     Route: 042
     Dates: start: 20090224, end: 20090318
  3. RITUXIMAB (RITUXIMAB) [Concomitant]
  4. OMEGA 3 FISH OIL (FISH OIL) [Concomitant]
  5. ADVIL (MEFENAMIC ACID) [Concomitant]
  6. ALEVE [Suspect]
  7. MIRALAX [Concomitant]
  8. BENADARYL (DIPHENHYDRAMINE HYDROCHLORIDE) [Concomitant]
  9. ACETAMINOPHEN [Concomitant]
  10. ALOXI [Concomitant]

REACTIONS (29)
  - ABDOMINAL DISTENSION [None]
  - ALPHA HAEMOLYTIC STREPTOCOCCAL INFECTION [None]
  - ANAEMIA [None]
  - ATELECTASIS [None]
  - BACTERIA STOOL IDENTIFIED [None]
  - BACTERIAL SEPSIS [None]
  - BLOOD CULTURE POSITIVE [None]
  - BLOOD LACTATE DEHYDROGENASE INCREASED [None]
  - BODY TEMPERATURE DECREASED [None]
  - CATHETER RELATED INFECTION [None]
  - DEHYDRATION [None]
  - DIZZINESS [None]
  - ELECTROCARDIOGRAM QRS COMPLEX ABNORMAL [None]
  - FEBRILE NEUTROPENIA [None]
  - GENERALISED OEDEMA [None]
  - HYDRONEPHROSIS [None]
  - INFECTION [None]
  - LEUKOCYTOSIS [None]
  - LUNG INFILTRATION [None]
  - LYMPHADENOPATHY [None]
  - MALIGNANT NEOPLASM PROGRESSION [None]
  - NON-HODGKIN'S LYMPHOMA REFRACTORY [None]
  - ORTHOSTATIC HYPOTENSION [None]
  - PLEURAL EFFUSION [None]
  - PYREXIA [None]
  - SINUS TACHYCARDIA [None]
  - STAPHYLOCOCCAL INFECTION [None]
  - VENTRICULAR DYSFUNCTION [None]
  - WHITE BLOOD CELL COUNT INCREASED [None]
